FAERS Safety Report 8967216 (Version 1)
Quarter: 2012Q4

REPORT INFORMATION
  Report Type: 
  Country: US (occurrence: US)
  Receive Date: 20121214
  Receipt Date: 20121214
  Transmission Date: 20130627
  Serious: No
  Sender: FDA-Public Use
  Company Number: US-GLAXOSMITHKLINE-A0952368A

PATIENT
  Sex: Male

DRUGS (9)
  1. FLONASE [Suspect]
     Route: 065
  2. COMBIVENT [Concomitant]
  3. SINGULAIR [Concomitant]
  4. OMEPRAZOLE [Concomitant]
  5. METOPROLOL [Concomitant]
  6. NIFEDIPINE [Concomitant]
  7. SIMVASTATIN [Concomitant]
  8. NASACORT [Concomitant]
     Route: 065
  9. RHINOCORT [Concomitant]
     Route: 065

REACTIONS (11)
  - Malaise [Unknown]
  - Oropharyngeal discomfort [Unknown]
  - Pharyngeal oedema [Unknown]
  - Dysphagia [Unknown]
  - Dyspnoea [Unknown]
  - Nasal discomfort [Unknown]
  - Epistaxis [Unknown]
  - Glossodynia [Unknown]
  - Tongue disorder [Unknown]
  - Oropharyngeal pain [Unknown]
  - Pharyngeal disorder [Unknown]
